FAERS Safety Report 6056051-7 (Version None)
Quarter: 2009Q1

REPORT INFORMATION
  Report Type: 
  Country: None (occurrence: None)
  Receive Date: 20090126
  Receipt Date: 20081119
  Transmission Date: 20090719
  Serious: Yes (Other)
  Sender: FDA-Public Use
  Company Number: CA-ACTAVISPR-ACTA008233

PATIENT
  Age: 37 Year
  Sex: Male

DRUGS (2)
  1. SORIATANE [Suspect]
     Indication: PSORIASIS
     Dosage: 10 MG 1 TIME PR. DAY ORAL
     Route: 048
     Dates: start: 20080401, end: 20081012
  2. ADVAIR DISKUS 100/50 [Concomitant]

REACTIONS (12)
  - ALOPECIA [None]
  - BONE PAIN [None]
  - CONSTIPATION [None]
  - DIABETES MELLITUS [None]
  - DIABETIC KETOACIDOSIS [None]
  - DISTURBANCE IN ATTENTION [None]
  - HEADACHE [None]
  - INTERMITTENT CLAUDICATION [None]
  - LETHARGY [None]
  - MYALGIA [None]
  - VISUAL IMPAIRMENT [None]
  - WEIGHT DECREASED [None]
